FAERS Safety Report 10183838 (Version 2)
Quarter: 2014Q3

REPORT INFORMATION
  Report Type: Other
  Country: FR (occurrence: JP)
  Receive Date: 20140520
  Receipt Date: 20140703
  Transmission Date: 20150326
  Serious: Yes (Other)
  Sender: FDA-Public Use
  Company Number: JP-FRI-1000067372

PATIENT
  Age: 18 Year
  Sex: Female

DRUGS (15)
  1. MIANSERIN [Suspect]
     Active Substance: MIANSERIN
     Indication: MAJOR DEPRESSION
     Dosage: 20 MG
  2. BROTIZOLAM [Suspect]
     Active Substance: BROTIZOLAM
     Dosage: 0.25 MG DAILY AT NIGHT
  3. BLONANSERIN [Suspect]
     Active Substance: BLONANSERIN
     Indication: HALLUCINATION
     Dosage: 4-8 MG
     Dates: start: 2013, end: 201306
  4. LEVOMEPROMAZIN [Suspect]
     Active Substance: LEVOMEPROMAZINE
     Dosage: 15 MG AT NIGHT
  5. MILNACIPRAN [Suspect]
     Active Substance: MILNACIPRAN
     Indication: MAJOR DEPRESSION
     Dosage: 50 MG
  6. TRAZODONE [Suspect]
     Active Substance: TRAZODONE HYDROCHLORIDE
     Dosage: 50 MG DAILY AT NIGHT
     Dates: start: 201301
  7. PAROXETINE [Concomitant]
     Active Substance: PAROXETINE\PAROXETINE HYDROCHLORIDE
  8. FLUVOXAMINE [Concomitant]
     Active Substance: FLUVOXAMINE
  9. TRAZODONE [Suspect]
     Active Substance: TRAZODONE HYDROCHLORIDE
     Dosage: 25 MG DAILY AT NIGHT
     Dates: start: 201302
  10. LEVOMEPROMAZIN [Suspect]
     Active Substance: LEVOMEPROMAZINE
     Dosage: 25 MG
     Dates: start: 201311
  11. FLUNITRAZEPAM [Suspect]
     Active Substance: FLUNITRAZEPAM
     Indication: MAJOR DEPRESSION
     Dosage: 2 MG AT NIGHT
  12. LEVOMEPROMAZIN [Suspect]
     Active Substance: LEVOMEPROMAZINE
     Dosage: 5 MG
     Dates: start: 2013
  13. PALIPERIDONE [Suspect]
     Active Substance: PALIPERIDONE
     Indication: HALLUCINATION
     Dosage: 6 MG
     Dates: start: 2013, end: 201306
  14. LEVOMEPROMAZIN [Suspect]
     Active Substance: LEVOMEPROMAZINE
     Dosage: 10 MG
  15. RISPERIDONE. [Concomitant]
     Active Substance: RISPERIDONE
     Dates: start: 2013, end: 201311

REACTIONS (7)
  - Dry mouth [Unknown]
  - Insomnia [Unknown]
  - Hallucination, auditory [Recovered/Resolved]
  - Sedation [Unknown]
  - Nausea [Unknown]
  - Schizophrenia [Unknown]
  - Somnolence [Unknown]

NARRATIVE: CASE EVENT DATE: 201301
